FAERS Safety Report 9260388 (Version 5)
Quarter: 2014Q3

REPORT INFORMATION
  Report Type: Spontaneous
  Country: IE (occurrence: IE)
  Receive Date: 20130429
  Receipt Date: 20140702
  Transmission Date: 20150326
  Serious: Yes (Death)
  Sender: FDA-Public Use
  Company Number: PHFR2013IE002450

PATIENT
  Age: 45 Year
  Sex: Male

DRUGS (7)
  1. CLOZARIL [Suspect]
     Active Substance: CLOZAPINE
     Dosage: 200 MG, BID, TWICE DAILY
     Route: 048
  2. CLOZARIL [Suspect]
     Active Substance: CLOZAPINE
     Dosage: UNK, REDUCED DOSE
     Route: 048
  3. PROPRANOLOL [Concomitant]
     Active Substance: PROPRANOLOL\PROPRANOLOL HYDROCHLORIDE
     Indication: PALPITATIONS
     Dosage: 40 MG, ONCE DAILY
     Route: 048
     Dates: start: 2012
  4. CLOZARIL [Suspect]
     Active Substance: CLOZAPINE
     Dosage: 275 MG
     Route: 048
     Dates: start: 2005
  5. CLOZARIL [Suspect]
     Active Substance: CLOZAPINE
     Indication: SCHIZOPHRENIA, PARANOID TYPE
     Dosage: 275 MG, 1 IN 1 DAY NOCTE (NIGHT)
     Route: 048
     Dates: start: 1999
  6. ARIPIPRAZOLE [Concomitant]
     Active Substance: ARIPIPRAZOLE
     Indication: SCHIZOPHRENIA, PARANOID TYPE
     Dosage: 20 MG
     Route: 048
     Dates: start: 20060214
  7. INDERAL [Concomitant]
     Active Substance: PROPRANOLOL HYDROCHLORIDE
     Indication: TACHYCARDIA
     Dosage: 40 MG, QD
     Route: 048
     Dates: start: 201201

REACTIONS (7)
  - Myocardial fibrosis [Fatal]
  - Antipsychotic drug level decreased [Unknown]
  - Tachycardia [Unknown]
  - Arrhythmia [Fatal]
  - Antipsychotic drug level increased [Fatal]
  - Cardiomegaly [Fatal]
  - Left ventricular hypertrophy [Fatal]

NARRATIVE: CASE EVENT DATE: 2008
